FAERS Safety Report 8895216 (Version 5)
Quarter: 2013Q3

REPORT INFORMATION
  Report Type: Report from Study
  Country: US (occurrence: US)
  Receive Date: 20121108
  Receipt Date: 20130927
  Transmission Date: 20140515
  Serious: Yes (Hospitalization, Disabling, Other)
  Sender: FDA-Public Use
  Company Number: US-ASTRAZENECA-2012SE82281

PATIENT
  Age: 25611 Day
  Sex: Male

DRUGS (14)
  1. METHOTREXATE [Suspect]
     Indication: RHEUMATOID ARTHRITIS
     Route: 048
     Dates: end: 20121016
  2. METFORMIN [Suspect]
     Indication: TYPE 2 DIABETES MELLITUS
     Route: 048
     Dates: end: 20121016
  3. LISINOPRIL [Suspect]
     Indication: HYPERTENSION
     Route: 048
     Dates: start: 20120305, end: 20121016
  4. FOSTAMATINIB DISODIUM [Suspect]
     Indication: RHEUMATOID ARTHRITIS
     Dosage: PATIENT RECEIVED PLACEBO TWICE A DAILY IN D4300C00002
     Route: 048
     Dates: start: 20110412, end: 20110704
  5. FOSTAMATINIB DISODIUM [Suspect]
     Indication: RHEUMATOID ARTHRITIS
     Dosage: OPEN LABEL STUDY THERAPY
     Route: 048
     Dates: start: 20110705, end: 20120313
  6. FOSTAMATINIB DISODIUM [Suspect]
     Indication: RHEUMATOID ARTHRITIS
     Dosage: OPEN LABEL STUDY THERAPY, DOSE REDUCED
     Route: 048
     Dates: start: 20120314, end: 20121008
  7. ACETAMINOPHEN [Concomitant]
     Indication: PAIN
     Route: 048
  8. ASPIRIN [Concomitant]
     Indication: PERIPHERAL VASCULAR DISORDER
     Route: 048
  9. CLOPIDOGREL BISULFATE [Concomitant]
     Indication: PERIPHERAL VASCULAR DISORDER
     Route: 048
     Dates: end: 20121016
  10. GLIMEPIRIDE [Concomitant]
     Indication: TYPE 2 DIABETES MELLITUS
     Route: 048
  11. VITAMIN D [Concomitant]
     Indication: VITAMIN D DEFICIENCY
     Route: 048
     Dates: start: 20110923
  12. ATENOLOL [Concomitant]
     Indication: HYPERTENSION
     Route: 048
     Dates: start: 20120305
  13. SIMVASTATIN [Concomitant]
     Indication: HYPERLIPIDAEMIA
     Route: 048
  14. IBUPROFEN [Concomitant]
     Indication: ARTHRALGIA
     Route: 048
     Dates: end: 20121016

REACTIONS (3)
  - Renal failure acute [Recovered/Resolved]
  - Peripheral ischaemia [Recovering/Resolving]
  - Pneumonia bacterial [Recovered/Resolved]
